FAERS Safety Report 6326258-X (Version None)
Quarter: 2009Q3

REPORT INFORMATION
  Report Type: 
  Country: None (occurrence: None)
  Receive Date: 20090824
  Receipt Date: 20090817
  Transmission Date: 20100115
  Serious: Yes (Death, Hospitalization)
  Sender: FDA-Public Use
  Company Number: US-GILEAD-2009-0023570

PATIENT
  Sex: Female

DRUGS (10)
  1. LETAIRIS [Suspect]
     Indication: PULMONARY ARTERIAL HYPERTENSION
     Route: 048
     Dates: start: 20090709, end: 20090725
  2. REVATIO [Concomitant]
  3. LASIX [Concomitant]
  4. ALDACTONE [Concomitant]
  5. SYNTHROID [Concomitant]
  6. POTASSIUM CHLORIDE [Concomitant]
  7. ASPIRIN [Concomitant]
  8. LEXAPRO [Concomitant]
  9. TEMAZEPAM [Concomitant]
  10. ZANTAC [Concomitant]

REACTIONS (4)
  - HEPATORENAL SYNDROME [None]
  - HYPOTENSION [None]
  - PANCREATITIS ACUTE [None]
  - RENAL FAILURE ACUTE [None]
